FAERS Safety Report 10600897 (Version 1)
Quarter: 2014Q4

REPORT INFORMATION
  Report Type: Spontaneous
  Country: US (occurrence: None)
  Receive Date: 20141121
  Receipt Date: 20141121
  Transmission Date: 20150529
  Serious: No
  Sender: FDA-Public Use
  Company Number: None

PATIENT
  Age: 35 Year
  Sex: Female

DRUGS (1)
  1. HUMIRA [Suspect]
     Active Substance: ADALIMUMAB
     Indication: COLITIS ULCERATIVE
     Route: 058
     Dates: start: 20140722

REACTIONS (9)
  - Infection [None]
  - Restless legs syndrome [None]
  - Pain in extremity [None]
  - Malaise [None]
  - Pyrexia [None]
  - Immune system disorder [None]
  - Insomnia [None]
  - Pain [None]
  - Nasopharyngitis [None]
